FAERS Safety Report 9668086 (Version 1)
Quarter: 2013Q4

REPORT INFORMATION
  Report Type: Spontaneous
  Country: US (occurrence: US)
  Receive Date: 20131104
  Receipt Date: 20131104
  Transmission Date: 20140711
  Serious: Yes (Hospitalization, Other)
  Sender: FDA-Public Use
  Company Number: US-PFIZER INC-2013310001

PATIENT
  Age: 62 Year
  Sex: Male

DRUGS (6)
  1. ACCUPRIL [Suspect]
     Indication: HYPERTENSION
     Dosage: 10 MG, 1X/DAY
     Route: 048
  2. GABAPENTIN [Suspect]
     Indication: RHINALGIA
     Dosage: 300 MG, 1X/DAY
  3. VICODIN [Suspect]
     Indication: PAIN IN EXTREMITY
     Dosage: (HYDROCODONE BITARTRATE 7.5/ PARACETAMOL 750), 1-2 TAB (1 IN 6 HOURS)
     Route: 048
  4. VICODIN [Suspect]
     Indication: PAIN
  5. TOPROL XL [Concomitant]
     Indication: HYPERTENSION
     Dosage: 50 MG, 2X/DAY
  6. LASIX [Concomitant]
     Dosage: UNK

REACTIONS (5)
  - Peripheral vascular disorder [Unknown]
  - Gangrene [Unknown]
  - Phantom pain [Unknown]
  - Local swelling [Unknown]
  - Drug ineffective [Unknown]
